FAERS Safety Report 14982413 (Version 1)
Quarter: 2018Q2

REPORT INFORMATION
  Report Type: Spontaneous
  Country: US (occurrence: US)
  Receive Date: 20180607
  Receipt Date: 20180607
  Transmission Date: 20180711
  Serious: No
  Sender: FDA-Public Use
  Company Number: US-PFIZER INC-2018227337

PATIENT
  Sex: Male

DRUGS (4)
  1. LEVOTHYROXINE. [Concomitant]
     Active Substance: LEVOTHYROXINE
     Indication: THYROIDECTOMY
     Dosage: 2 TABLETS BY MOUTH, ONCE A DAY
     Route: 048
     Dates: start: 2012
  2. METFORMIN [Concomitant]
     Active Substance: METFORMIN HYDROCHLORIDE
     Indication: BLOOD GLUCOSE ABNORMAL
     Dosage: 1 TABLET IN THE MORNING AND 1 AT NIGHT, BY MOUTH
     Route: 048
  3. GABAPENTIN. [Suspect]
     Active Substance: GABAPENTIN
     Indication: NEURALGIA
     Dosage: UNK, 3X/DAY
     Route: 048
     Dates: start: 2018
  4. BABY ASPIRIN [Concomitant]
     Active Substance: ASPIRIN
     Dosage: 1 TABLET BY MOUTH, DAILY
     Route: 048

REACTIONS (2)
  - Hypoaesthesia [Not Recovered/Not Resolved]
  - Drug ineffective for unapproved indication [Not Recovered/Not Resolved]
